FAERS Safety Report 6302510-9 (Version None)
Quarter: 2009Q3

REPORT INFORMATION
  Report Type: 
  Country: None (occurrence: None)
  Receive Date: 20090810
  Receipt Date: 20090731
  Transmission Date: 20100115
  Serious: Yes (Hospitalization)
  Sender: FDA-Public Use
  Company Number: CN-ABBOTT-09P-035-0588558-00

PATIENT
  Sex: Male

DRUGS (3)
  1. DEPAKENE [Suspect]
     Indication: CONVULSION PROPHYLAXIS
     Route: 048
     Dates: start: 20090701, end: 20090709
  2. CEPHALOSPORIN C [Suspect]
     Indication: DRUG USE FOR UNKNOWN INDICATION
  3. INDOMETHACIN [Suspect]
     Indication: DRUG USE FOR UNKNOWN INDICATION

REACTIONS (4)
  - BLISTER [None]
  - HYPERSENSITIVITY [None]
  - PYREXIA [None]
  - RASH [None]
